FAERS Safety Report 24290306 (Version 1)
Quarter: 2024Q3

REPORT INFORMATION
  Report Type: Spontaneous
  Country: US (occurrence: US)
  Receive Date: 20240906
  Receipt Date: 20240906
  Transmission Date: 20241016
  Serious: No
  Sender: ABBVIE
  Company Number: US-ABBVIE-5908847

PATIENT
  Sex: Male

DRUGS (5)
  1. VRAYLAR [Suspect]
     Active Substance: CARIPRAZINE
     Indication: Schizophrenia
     Route: 048
     Dates: start: 202308
  2. VRAYLAR [Suspect]
     Active Substance: CARIPRAZINE
     Indication: Schizophrenia
     Route: 048
     Dates: start: 202408
  3. VRAYLAR [Suspect]
     Active Substance: CARIPRAZINE
     Indication: Schizophrenia
     Route: 048
     Dates: start: 20240829
  4. PALIPERIDONE [Concomitant]
     Active Substance: PALIPERIDONE
     Indication: Anxiety
  5. RISPERIDONE [Concomitant]
     Active Substance: RISPERIDONE
     Indication: Anxiety

REACTIONS (3)
  - Hallucination, auditory [Recovering/Resolving]
  - Hallucination, tactile [Recovering/Resolving]
  - Hallucination, visual [Recovering/Resolving]

NARRATIVE: CASE EVENT DATE: 20240801
